FAERS Safety Report 11005144 (Version 1)
Quarter: 2015Q2

REPORT INFORMATION
  Report Type: Spontaneous
  Country: US (occurrence: US)
  Receive Date: 20150409
  Receipt Date: 20150409
  Transmission Date: 20150821
  Serious: Yes (Death, Other)
  Sender: FDA-Public Use
  Company Number: US-GLAXOSMITHKLINE-US2015046295

PATIENT
  Age: 83 Year
  Sex: Male

DRUGS (10)
  1. ROXANOL [Concomitant]
     Active Substance: MORPHINE SULFATE
  2. CARDIZEM [Concomitant]
     Active Substance: DILTIAZEM HYDROCHLORIDE
  3. NEUPOGEN [Concomitant]
     Active Substance: FILGRASTIM
  4. ACYCLOVIR. [Concomitant]
     Active Substance: ACYCLOVIR
  5. ASPIRIN. [Concomitant]
     Active Substance: ASPIRIN
  6. TAMSULOSIN [Concomitant]
     Active Substance: TAMSULOSIN
  7. PROMACTA [Suspect]
     Active Substance: ELTROMBOPAG OLAMINE
     Indication: MYELODYSPLASTIC SYNDROME
     Route: 048
     Dates: start: 201503
  8. SYNTHROID [Concomitant]
     Active Substance: LEVOTHYROXINE SODIUM
  9. FUROSEMIDE. [Concomitant]
     Active Substance: FUROSEMIDE
  10. POTASSIUM [Concomitant]
     Active Substance: POTASSIUM

REACTIONS (7)
  - Condition aggravated [Unknown]
  - Myelodysplastic syndrome [Unknown]
  - Death [Fatal]
  - Drug ineffective [Unknown]
  - Blood count abnormal [Unknown]
  - White blood cell count abnormal [Unknown]
  - Platelet count abnormal [Unknown]

NARRATIVE: CASE EVENT DATE: 201503
